FAERS Safety Report 9633905 (Version 2)
Quarter: 2013Q4

REPORT INFORMATION
  Report Type: Spontaneous
  Country: SG (occurrence: SG)
  Receive Date: 20131021
  Receipt Date: 20131021
  Transmission Date: 20140711
  Serious: Yes (Death)
  Sender: FDA-Public Use
  Company Number: SG-JNJFOC-20130903864

PATIENT
  Age: 54 Year
  Sex: 0

DRUGS (11)
  1. DUROGESIC [Suspect]
     Indication: PAIN
     Route: 062
     Dates: start: 20130304, end: 20130305
  2. DUROGESIC [Suspect]
     Indication: PAIN
     Route: 062
     Dates: start: 201303
  3. PARACETAMOL [Concomitant]
     Route: 065
  4. OMEPRAZOLE [Concomitant]
     Route: 065
  5. MORPHINE [Concomitant]
     Route: 065
  6. TOLBUTAMIDE [Concomitant]
     Route: 065
  7. LACTULOSE [Concomitant]
     Route: 065
  8. DEXAMETHASONE [Concomitant]
     Route: 048
  9. MORPHINE [Concomitant]
     Route: 058
  10. HALOPERIDOL [Concomitant]
     Route: 065
  11. SENNA [Concomitant]
     Route: 065

REACTIONS (1)
  - Pruritus [Fatal]
